FAERS Safety Report 7041060-1 (Version None)
Quarter: 2010Q4

REPORT INFORMATION
  Report Type: 
  Country: None (occurrence: None)
  Receive Date: 20101013
  Receipt Date: 20101001
  Transmission Date: 20110411
  Serious: Yes (Hospitalization)
  Sender: FDA-Public Use
  Company Number: RU-BAYER-201038644GPV

PATIENT
  Age: 38 Year
  Sex: Male
  Weight: 59 kg

DRUGS (4)
  1. ALEMTUZUMAB (STUDY MEDICATION NOT GIVEN) [Suspect]
     Indication: MULTIPLE SCLEROSIS
     Dosage: STUDY MEDICATION NOT GIVEN
  2. ALEMTUZUMAB [Suspect]
     Indication: MULTIPLE SCLEROSIS
     Route: 042
     Dates: start: 20040517, end: 20040521
  3. ALEMTUZUMAB [Suspect]
     Route: 042
     Dates: start: 20050523, end: 20050525
  4. ALEMTUZUMAB [Suspect]
     Route: 042
     Dates: start: 20090505, end: 20090507

REACTIONS (1)
  - ENDOCRINE OPHTHALMOPATHY [None]
